FAERS Safety Report 14629683 (Version 1)
Quarter: 2018Q1

REPORT INFORMATION
  Report Type: Spontaneous
  Country: FR (occurrence: FR)
  Receive Date: 20180313
  Receipt Date: 20180313
  Transmission Date: 20180509
  Serious: Yes (Other)
  Sender: FDA-Public Use
  Company Number: FR-MERCK KGAA-2043592

PATIENT
  Age: 37 Year
  Sex: Female

DRUGS (2)
  1. DONORMYL [Concomitant]
  2. NOVOTHYROX [Suspect]
     Active Substance: LEVOTHYROXINE SODIUM
     Indication: PRODUCT USED FOR UNKNOWN INDICATION

REACTIONS (13)
  - Sleep disorder [None]
  - Hypothyroidism [None]
  - Loss of personal independence in daily activities [None]
  - Physical disability [None]
  - Palpitations [None]
  - Fatigue [None]
  - Apathy [None]
  - Paraesthesia [None]
  - Depressed mood [None]
  - Blood thyroid stimulating hormone increased [None]
  - General physical health deterioration [None]
  - Social avoidant behaviour [None]
  - Headache [None]

NARRATIVE: CASE EVENT DATE: 20170519
